FAERS Safety Report 7990162-1 (Version None)
Quarter: 2011Q4

REPORT INFORMATION
  Report Type: 
  Country: None (occurrence: None)
  Receive Date: 20111219
  Receipt Date: 20101028
  Transmission Date: 20120403
  Serious: No
  Sender: FDA-Public Use
  Company Number: US-ASTRAZENECA-2010SE45159

PATIENT
  Age: 25624 Day
  Sex: Female
  Weight: 60.8 kg

DRUGS (2)
  1. CRESTOR [Suspect]
     Route: 048
     Dates: start: 20100903
  2. CRESTOR [Suspect]
     Indication: HYPERCHOLESTEROLAEMIA
     Route: 048
     Dates: start: 20100329

REACTIONS (2)
  - PLATELET COUNT DECREASED [None]
  - MEAN PLATELET VOLUME INCREASED [None]
